FAERS Safety Report 14435701 (Version 1)
Quarter: 2018Q1

REPORT INFORMATION
  Report Type: Spontaneous
  Country: US (occurrence: US)
  Receive Date: 20180125
  Receipt Date: 20180125
  Transmission Date: 20180509
  Serious: Yes (Life-Threatening)
  Sender: FDA-Public Use
  Company Number: US-ASTRAZENECA-2018SE10088

PATIENT
  Sex: Female
  Weight: 73.5 kg

DRUGS (13)
  1. FASLODEX [Suspect]
     Active Substance: FULVESTRANT
     Indication: BREAST CANCER METASTATIC
     Route: 030
     Dates: end: 20171130
  2. ASPIRIN. [Concomitant]
     Active Substance: ASPIRIN
  3. ATIVAN [Concomitant]
     Active Substance: LORAZEPAM
  4. ZOFRAN [Concomitant]
     Active Substance: ONDANSETRON HYDROCHLORIDE
  5. OMEPRAZOLE. [Suspect]
     Active Substance: OMEPRAZOLE
     Route: 048
  6. PEPCID [Concomitant]
     Active Substance: FAMOTIDINE
  7. LACTULOSE. [Concomitant]
     Active Substance: LACTULOSE
  8. MELOX [Concomitant]
     Active Substance: MELOXICAM
     Dosage: AS NEEDED
  9. CIPROFLOXACIN. [Concomitant]
     Active Substance: CIPROFLOXACIN
  10. IBRANCE [Suspect]
     Active Substance: PALBOCICLIB
     Indication: BREAST CANCER METASTATIC
     Route: 048
     Dates: start: 201705
  11. MELATONIN [Concomitant]
     Active Substance: MELATONIN
  12. COMPAZINE [Concomitant]
     Active Substance: PROCHLORPERAZINE MALEATE
  13. MORPHINE [Concomitant]
     Active Substance: MORPHINE

REACTIONS (1)
  - Hepatic failure [Not Recovered/Not Resolved]
